FAERS Safety Report 10056236 (Version 2)
Quarter: 2014Q2

REPORT INFORMATION
  Report Type: Spontaneous
  Country: BR (occurrence: BR)
  Receive Date: 20140403
  Receipt Date: 20140416
  Transmission Date: 20141212
  Serious: Yes (Other)
  Sender: FDA-Public Use
  Company Number: BR-ELI_LILLY_AND_COMPANY-BR201403008833

PATIENT
  Age: 76 Year
  Sex: Female
  Weight: 90 kg

DRUGS (11)
  1. CYMBALTA [Suspect]
     Indication: PAIN
     Dosage: 30 MG, UNKNOWN
     Route: 065
  2. CYMBALTA [Interacting]
     Dosage: 60 MG, QD
     Route: 048
  3. STILNOX [Concomitant]
     Indication: SLEEP DISORDER
     Dosage: 10 MG, UNKNOWN
     Route: 065
  4. RIVOTRIL [Concomitant]
     Indication: SLEEP DISORDER
     Dosage: 27 GTT, UNKNOWN
     Route: 065
  5. HUMULIN N [Concomitant]
     Indication: DIABETES MELLITUS MANAGEMENT
     Dosage: 40 IU, EACH MORNING
     Route: 065
  6. HUMULIN N [Concomitant]
     Dosage: 30 IU, EACH EVENING
     Route: 065
  7. HUMULIN R [Concomitant]
     Indication: DIABETES MELLITUS MANAGEMENT
     Dosage: UNK, UNKNOWN
     Route: 065
  8. PURAN T4 [Concomitant]
     Dosage: 50 UG, UNKNOWN
     Route: 065
  9. DIPYRONE [Concomitant]
     Indication: PAIN
     Dosage: UNK, PRN
     Route: 065
  10. LISADOR [Concomitant]
     Indication: PAIN
     Dosage: UNK, PRN
     Route: 065
  11. LUFTAL                             /00159501/ [Concomitant]
     Indication: DIVERTICULITIS
     Dosage: UNK, UNKNOWN
     Route: 065

REACTIONS (12)
  - Hallucination, visual [Recovered/Resolved]
  - Convulsion [Unknown]
  - Feeling abnormal [Unknown]
  - Retching [Recovered/Resolved]
  - Burning sensation [Unknown]
  - Diabetic neuropathy [Unknown]
  - Drug withdrawal syndrome [Unknown]
  - Blood pressure increased [Unknown]
  - Malaise [Recovered/Resolved]
  - Nightmare [Unknown]
  - Drug ineffective [Unknown]
  - Drug interaction [Unknown]
